FAERS Safety Report 15853117 (Version 1)
Quarter: 2018Q4

REPORT INFORMATION
  Report Type: Spontaneous
  Country: US (occurrence: US)
  Receive Date: 20181228
  Receipt Date: 20181228
  Transmission Date: 20190205
  Serious: No
  Sender: FDA-Public Use
  Company Number: None

PATIENT
  Age: 76 Year
  Sex: Female
  Weight: 77.11 kg

DRUGS (1)
  1. XIIDRA [Suspect]
     Active Substance: LIFITEGRAST
     Indication: DRY EYE
     Route: 031
     Dates: start: 20180712

REACTIONS (7)
  - Dehydration [None]
  - Arrhythmia [None]
  - Eye irritation [None]
  - Contusion [None]
  - Skin discolouration [None]
  - Eye swelling [None]
  - Steroid withdrawal syndrome [None]

NARRATIVE: CASE EVENT DATE: 20180712
